FAERS Safety Report 19900977 (Version 2)
Quarter: 2021Q4

REPORT INFORMATION
  Report Type: Report from Study
  Country: IT (occurrence: IT)
  Receive Date: 20210929
  Receipt Date: 20211008
  Transmission Date: 20220304
  Serious: Yes (Hospitalization)
  Sender: FDA-Public Use
  Company Number: None

PATIENT
  Age: 69 Year
  Sex: Male
  Weight: 80 kg

DRUGS (4)
  1. LINEZOLID [Suspect]
     Active Substance: LINEZOLID
     Dosage: 600 MG
     Route: 042
     Dates: start: 20210819, end: 20210826
  2. MEROPENEM [Suspect]
     Active Substance: MEROPENEM
     Indication: Intervertebral discitis
     Dosage: 2 G
     Route: 042
     Dates: start: 20210819, end: 20210826
  3. DAPTOMYCIN [Suspect]
     Active Substance: DAPTOMYCIN
     Route: 042
     Dates: start: 20210826, end: 20210830
  4. FOSFOMYCIN [Suspect]
     Active Substance: FOSFOMYCIN
     Route: 042
     Dates: start: 20210826, end: 20210830

REACTIONS (2)
  - Toxic epidermal necrolysis [Recovered/Resolved with Sequelae]
  - Drug eruption [Recovered/Resolved with Sequelae]

NARRATIVE: CASE EVENT DATE: 20210826
